FAERS Safety Report 7803842-5 (Version None)
Quarter: 2011Q4

REPORT INFORMATION
  Report Type: 
  Country: None (occurrence: None)
  Receive Date: 20111010
  Receipt Date: 20110927
  Transmission Date: 20120403
  Serious: Yes (Hospitalization)
  Sender: FDA-Public Use
  Company Number: DE-JNJFOC-20110911551

PATIENT
  Sex: Female
  Weight: 95 kg

DRUGS (3)
  1. REMICADE [Suspect]
     Indication: INFLAMMATORY BOWEL DISEASE
     Dosage: ONCE IN 6-8 WEEKS
     Route: 042
     Dates: start: 20010610
  2. REMICADE [Suspect]
     Indication: CROHN'S DISEASE
     Dosage: ONCE IN 6-8 WEEKS
     Route: 042
     Dates: start: 20010610
  3. AZATHIOPRINE [Concomitant]
     Route: 065
     Dates: start: 20010101, end: 20100101

REACTIONS (12)
  - ARTHROPATHY [None]
  - COLITIS [None]
  - GASTRITIS [None]
  - SACROILIITIS [None]
  - OSTEOPOROSIS [None]
  - PRURITUS [None]
  - ACNE [None]
  - ATRIOVENTRICULAR BLOCK [None]
  - STAPHYLOCOCCAL INFECTION [None]
  - ABSCESS [None]
  - LIPOMA [None]
  - OESOPHAGITIS [None]
